FAERS Safety Report 19654010 (Version 1)
Quarter: 2021Q3

REPORT INFORMATION
  Report Type: Spontaneous
  Country: AU (occurrence: AU)
  Receive Date: 20210804
  Receipt Date: 20210804
  Transmission Date: 20211014
  Serious: Yes (Other)
  Sender: FDA-Public Use
  Company Number: AU-CIPLA LTD.-2021AU05239

PATIENT

DRUGS (2)
  1. METHOTREXATE. [Suspect]
     Active Substance: METHOTREXATE
     Indication: PSORIATIC ARTHROPATHY
     Dosage: 20 MILLIGRAM, PER WEEK
     Route: 065
  2. MELOXICAM. [Suspect]
     Active Substance: MELOXICAM
     Indication: PSORIATIC ARTHROPATHY
     Dosage: UNK
     Route: 065

REACTIONS (2)
  - Off label use [Recovered/Resolved]
  - Drug ineffective for unapproved indication [Not Recovered/Not Resolved]
